FAERS Safety Report 15780939 (Version 1)
Quarter: 2019Q1

REPORT INFORMATION
  Report Type: Spontaneous
  Country: US (occurrence: US)
  Receive Date: 20190102
  Receipt Date: 20190102
  Transmission Date: 20190417
  Serious: Yes (Hospitalization, Other)
  Sender: FDA-Public Use
  Company Number: US-ALKEM LABORATORIES LIMITED-US-ALKEM-2018-00087

PATIENT
  Age: 43 Year
  Sex: Male

DRUGS (2)
  1. PREDNISONE. [Suspect]
     Active Substance: PREDNISONE
     Indication: DERMATITIS CONTACT
     Dosage: 15 MG, UNK
     Route: 065
  2. MYCOPHENOLATE MOFETIL. [Suspect]
     Active Substance: MYCOPHENOLATE MOFETIL
     Indication: DERMATITIS CONTACT
     Dosage: UNK
     Route: 065

REACTIONS (6)
  - Molluscum contagiosum [Unknown]
  - Infection [Not Recovered/Not Resolved]
  - Cellulitis [Unknown]
  - Lymphopenia [Not Recovered/Not Resolved]
  - Secondary immunodeficiency [Not Recovered/Not Resolved]
  - Pneumonia [Unknown]
